FAERS Safety Report 9559775 (Version 1)
Quarter: 2013Q3

REPORT INFORMATION
  Report Type: Spontaneous
  Country: US (occurrence: None)
  Receive Date: 20130821
  Receipt Date: 20130821
  Transmission Date: 20140515
  Serious: No
  Sender: FDA-Public Use
  Company Number: 1000045770

PATIENT
  Age: 86 Year
  Sex: Female

DRUGS (5)
  1. TUDORZA PRESSAIR (ACLIDINIUM BROMIDE) (400 MICROGRAM, POWDER) [Suspect]
     Indication: CHRONIC OBSTRUCTIVE PULMONARY DISEASE
     Route: 048
     Dates: start: 201304
  2. SINGULAIR [Concomitant]
  3. ATACAND (CANDESARTAN CILEXETIL) [Concomitant]
  4. LIPITOR (ATORVASTATIN CALCIUM) [Concomitant]
  5. OMEPRAZOLE (OMEPRAZOLE) [Concomitant]

REACTIONS (1)
  - Urine flow decreased [None]
